FAERS Safety Report 7671975-2 (Version None)
Quarter: 2011Q3

REPORT INFORMATION
  Report Type: 
  Country: None (occurrence: None)
  Receive Date: 20110809
  Receipt Date: 20110727
  Transmission Date: 20111222
  Serious: Yes (Hospitalization)
  Sender: FDA-Public Use
  Company Number: GB-GLAXOSMITHKLINE-B0737651A

PATIENT
  Sex: Male

DRUGS (9)
  1. ALLOPURINOL [Concomitant]
     Dates: start: 20090910
  2. CHLORAMBUCIL [Suspect]
     Indication: CHRONIC LYMPHOCYTIC LEUKAEMIA
     Dosage: 20MG PER DAY
     Route: 048
     Dates: start: 20090910
  3. TRAMADOL HCL [Concomitant]
     Dates: start: 20080801
  4. FRAGMIN [Concomitant]
     Dates: start: 20090608
  5. ACETAMINOPHEN [Concomitant]
     Dates: start: 20080801
  6. MABTHERA [Suspect]
     Indication: CHRONIC LYMPHOCYTIC LEUKAEMIA
     Dosage: 1000MG MONTHLY
     Route: 042
     Dates: start: 20090910, end: 20091105
  7. GABAPENTIN [Concomitant]
     Dates: start: 20090713
  8. PERINDOPRIL [Concomitant]
     Dates: start: 20060807
  9. ACITRETIN [Concomitant]
     Dates: start: 20040607

REACTIONS (2)
  - ANAL INFECTION [None]
  - BACK PAIN [None]
